FAERS Safety Report 10757928 (Version 1)
Quarter: 2015Q1

REPORT INFORMATION
  Report Type: Spontaneous
  Country: US (occurrence: None)
  Receive Date: 20150202
  Receipt Date: 20150202
  Transmission Date: 20150721
  Serious: Yes (Life-Threatening, Hospitalization)
  Sender: FDA-Public Use
  Company Number: None

PATIENT
  Age: 68 Year
  Sex: Female
  Weight: 84.37 kg

DRUGS (4)
  1. FLAX OIL [Concomitant]
  2. SIMVISTATIN [Concomitant]
     Active Substance: SIMVASTATIN
  3. HYDROXYCHLOROQUINE [Suspect]
     Active Substance: HYDROXYCHLOROQUINE
     Indication: RHEUMATOID ARTHRITIS
     Dosage: 180 PILLS DISPENSED 2 PER DAY BY MOUTH
     Route: 048
     Dates: start: 20140128, end: 20140223
  4. MULTI VITAMIN [Concomitant]
     Active Substance: VITAMINS

REACTIONS (4)
  - Stevens-Johnson syndrome [None]
  - Drug reaction with eosinophilia and systemic symptoms [None]
  - Scar [None]
  - Emotional distress [None]

NARRATIVE: CASE EVENT DATE: 20140223
